FAERS Safety Report 17327681 (Version 2)
Quarter: 2020Q1

REPORT INFORMATION
  Report Type: Spontaneous
  Country: AT (occurrence: AT)
  Receive Date: 20200127
  Receipt Date: 20200206
  Transmission Date: 20200409
  Serious: Yes (Hospitalization)
  Sender: FDA-Public Use
  Company Number: AT-JNJFOC-20200131189

PATIENT
  Age: 59 Year
  Sex: Male

DRUGS (11)
  1. THROMBO ASS [Concomitant]
     Active Substance: ASPIRIN
     Indication: VASCULAR GRAFT STENOSIS
  2. SIMVASTATIN. [Concomitant]
     Active Substance: SIMVASTATIN
     Dosage: 40 MG, QD 0-0-1
  3. RIVAROXABAN [Suspect]
     Active Substance: RIVAROXABAN
     Indication: PERIPHERAL ARTERIAL OCCLUSIVE DISEASE
     Dosage: 2.5 MG, BID 1-0-1
     Route: 048
     Dates: start: 201910, end: 20191214
  4. RIVAROXABAN [Suspect]
     Active Substance: RIVAROXABAN
     Indication: ARTERIAL BYPASS OPERATION
  5. LISINOPRIL. [Concomitant]
     Active Substance: LISINOPRIL
     Dosage: 10 MG, BID 1-0-1
  6. NOVALGIN (METAMIZOLE SODIUM) [Concomitant]
     Active Substance: METAMIZOLE SODIUM
     Dosage: 500 MG, TID 1-1-1
  7. RIVAROXABAN [Suspect]
     Active Substance: RIVAROXABAN
     Indication: VASCULAR GRAFT STENOSIS
  8. HYDAL [Concomitant]
     Active Substance: HYDROMORPHONE HYDROCHLORIDE
     Dosage: 8 MG, BID 1-0-1
  9. THROMBO ASS [Concomitant]
     Active Substance: ASPIRIN
     Indication: PERIPHERAL ARTERIAL OCCLUSIVE DISEASE
     Dosage: 100 MG, QD 0-1-0
     Dates: start: 201910
  10. PANTOPRAZOLE [Concomitant]
     Active Substance: PANTOPRAZOLE
     Dosage: 40 MG, QD 1-0-0
  11. THROMBO ASS [Concomitant]
     Active Substance: ASPIRIN
     Indication: ARTERIAL BYPASS OPERATION

REACTIONS (2)
  - Ischaemia [Unknown]
  - Arterial bypass occlusion [Unknown]

NARRATIVE: CASE EVENT DATE: 20191215
